FAERS Safety Report 9436604 (Version 1)
Quarter: 2013Q3

REPORT INFORMATION
  Report Type: Spontaneous
  Country: BR (occurrence: BR)
  Receive Date: 20130802
  Receipt Date: 20130802
  Transmission Date: 20140515
  Serious: Yes (Other)
  Sender: FDA-Public Use
  Company Number: BR-JNJFOC-20130714322

PATIENT
  Sex: Female

DRUGS (4)
  1. TYLENOL 500 [Suspect]
     Route: 048
  2. TYLENOL 500 [Suspect]
     Indication: PAIN
     Route: 048
  3. PROFENID [Suspect]
     Indication: PRODUCT USED FOR UNKNOWN INDICATION
     Route: 065
  4. CODEINE [Concomitant]
     Indication: PRODUCT USED FOR UNKNOWN INDICATION
     Route: 065

REACTIONS (4)
  - Haemorrhage [Unknown]
  - Medication error [Unknown]
  - Intentional overdose [Unknown]
  - Drug ineffective [Unknown]
